FAERS Safety Report 26083703 (Version 1)
Quarter: 2025Q4

REPORT INFORMATION
  Report Type: Report from Study
  Country: US (occurrence: US)
  Receive Date: 20251124
  Receipt Date: 20251124
  Transmission Date: 20260118
  Serious: Yes (Other)
  Sender: ROCHE
  Company Number: US-ROCHE-10000411099

PATIENT
  Age: 60 Year
  Sex: Male

DRUGS (20)
  1. AVASTIN [Suspect]
     Active Substance: BEVACIZUMAB
     Indication: Pancreatic carcinoma
     Route: 042
     Dates: start: 20250827
  2. TECENTRIQ [Suspect]
     Active Substance: ATEZOLIZUMAB
     Indication: Pancreatic carcinoma
     Route: 065
  3. CAPECITABINE [Suspect]
     Active Substance: CAPECITABINE
     Indication: Pancreatic carcinoma
     Route: 048
  4. GABAPENTIN [Concomitant]
     Active Substance: GABAPENTIN
  5. OPDIVO [Concomitant]
     Active Substance: NIVOLUMAB
  6. YERVOY [Concomitant]
     Active Substance: IPILIMUMAB
  7. DEXAMETHASONE [Concomitant]
     Active Substance: DEXAMETHASONE
  8. LEUCOVORIN CALCIUM [Concomitant]
     Active Substance: LEUCOVORIN CALCIUM
  9. FLUOROURACIL [Concomitant]
     Active Substance: FLUOROURACIL
  10. FLUOROURACIL [Concomitant]
     Active Substance: FLUOROURACIL
  11. GEMCITABINE HYDROCHLORIDE [Concomitant]
     Active Substance: GEMCITABINE HYDROCHLORIDE
  12. IRINOTECAN HYDROCHLORIDE [Concomitant]
     Active Substance: IRINOTECAN HYDROCHLORIDE
  13. OXALIPLATIN [Concomitant]
     Active Substance: OXALIPLATIN
  14. ELIQUIS [Concomitant]
     Active Substance: APIXABAN
  15. PANTOPRAZOLE SODIUM [Concomitant]
     Active Substance: PANTOPRAZOLE SODIUM
  16. STIVARGA [Concomitant]
     Active Substance: REGORAFENIB MONOHYDRATE
  17. ONDANSETRON HYDROCHLORIDE [Concomitant]
     Active Substance: ONDANSETRON HYDROCHLORIDE
  18. DEXAMETHASONE ACETATE [Concomitant]
     Active Substance: DEXAMETHASONE ACETATE
  19. FAMOTIDINE [Concomitant]
     Active Substance: FAMOTIDINE
  20. ATROPINE SULFATE [Concomitant]
     Active Substance: ATROPINE SULFATE

REACTIONS (9)
  - Off label use [Unknown]
  - Thrombosis [Unknown]
  - Ascites [Recovering/Resolving]
  - Hypoaesthesia [Unknown]
  - Paraesthesia [Unknown]
  - Weight decreased [Unknown]
  - Neutropenia [Unknown]
  - Swelling [Unknown]
  - Hyponatraemia [Unknown]

NARRATIVE: CASE EVENT DATE: 20250925
